FAERS Safety Report 4556704-3 (Version None)
Quarter: 2005Q1

REPORT INFORMATION
  Report Type: 
  Country: None (occurrence: None)
  Receive Date: 20050120
  Receipt Date: 20050114
  Transmission Date: 20050727
  Serious: Yes (Other)
  Sender: FDA-Public Use
  Company Number: 200510435GDDC

PATIENT
  Age: 42 Year
  Sex: Female

DRUGS (2)
  1. LANTUS [Suspect]
     Dosage: DOSE UNIT: UNITS
     Route: 058
  2. NOVORAPID [Concomitant]
     Dosage: DOSE: 2-6; DOSE UNIT: UNITS
     Route: 058

REACTIONS (2)
  - CIRCULATORY COLLAPSE [None]
  - GLYCOSYLATED HAEMOGLOBIN INCREASED [None]
